FAERS Safety Report 21360853 (Version 3)
Quarter: 2022Q4

REPORT INFORMATION
  Report Type: Report from Study
  Country: GR (occurrence: GR)
  Receive Date: 20220921
  Receipt Date: 20221205
  Transmission Date: 20230112
  Serious: Yes (Hospitalization)
  Sender: FDA-Public Use
  Company Number: GR-EMA-DD-20190830-khare_i-132219

PATIENT
  Age: 69 Year
  Sex: Female
  Weight: 98 kg

DRUGS (37)
  1. CAPECITABINE [Suspect]
     Active Substance: CAPECITABINE
     Indication: HER2 positive breast cancer
     Dosage: 2000 MG, DOSE PRIOR TO THE EVENT ON 22/OCT/2018
     Route: 048
     Dates: start: 20180618, end: 20180709
  2. TRASTUZUMAB [Suspect]
     Active Substance: TRASTUZUMAB
     Indication: HER2 positive breast cancer
     Dosage: MOST RECENT DOSE PRIOR TO THE EVENT: 25/OCT/2016
     Route: 042
     Dates: start: 20161018
  3. TRASTUZUMAB [Suspect]
     Active Substance: TRASTUZUMAB
     Dosage: DOSE PRIOR TO THE EVENT:17/NOV/2016, 10/MAY/2019
     Route: 042
     Dates: start: 20161025, end: 20161025
  4. DOCETAXEL [Suspect]
     Active Substance: DOCETAXEL
     Indication: HER2 positive breast cancer
     Dosage: DATE OF MOST RECENT DOSE: 04/APR/2017
     Route: 042
     Dates: start: 20161018
  5. DOCETAXEL [Suspect]
     Active Substance: DOCETAXEL
     Dosage: 160 MG, Q3W, RECENT DOSE PRIOR EVENT 17/NOV/2016
     Route: 042
     Dates: start: 20161025, end: 20161025
  6. ADO-TRASTUZUMAB EMTANSINE [Suspect]
     Active Substance: ADO-TRASTUZUMAB EMTANSINE
     Indication: Breast cancer
     Dosage: Q3W - EVERY 3 WEEKS DATE OF MOST RECENT DOSE: 04/MAY/2018
     Route: 042
     Dates: start: 20170726, end: 20180504
  7. ADO-TRASTUZUMAB EMTANSINE [Suspect]
     Active Substance: ADO-TRASTUZUMAB EMTANSINE
     Indication: HER2 positive breast cancer
  8. ADO-TRASTUZUMAB EMTANSINE [Suspect]
     Active Substance: ADO-TRASTUZUMAB EMTANSINE
     Indication: HER2 positive breast cancer
     Dosage: 270 MILLIGRAM, Q3W
     Route: 048
     Dates: start: 20170726, end: 20180504
  9. GEMCITABINE [Suspect]
     Active Substance: GEMCITABINE
     Indication: HER2 positive breast cancer
     Dosage: 2000 MILLIGRAM
     Route: 048
     Dates: start: 20190510, end: 20190703
  10. GEMCITABINE [Suspect]
     Active Substance: GEMCITABINE
     Dosage: 1500 MILLIGRAM
     Route: 048
     Dates: start: 20190724, end: 20190821
  11. GEMCITABINE [Suspect]
     Active Substance: GEMCITABINE
     Dosage: D1,D8
     Route: 048
     Dates: start: 20190828, end: 20190828
  12. LAPATINIB [Suspect]
     Active Substance: LAPATINIB
     Indication: HER2 positive breast cancer
     Dosage: 1250 MG QD DOSE PRIOR TO THE EVENT14/NOV/2018
     Route: 048
     Dates: start: 20180618, end: 20180709
  13. LAPATINIB [Suspect]
     Active Substance: LAPATINIB
     Indication: HER2 positive breast cancer
     Dosage: UNK, QD
     Route: 048
     Dates: start: 20180723, end: 20181113
  14. LAPATINIB [Suspect]
     Active Substance: LAPATINIB
     Dosage: UNK, QD
     Route: 048
     Dates: start: 20181114, end: 20190503
  15. LAPATINIB [Suspect]
     Active Substance: LAPATINIB
     Indication: HER2 positive breast cancer
     Dosage: 1250 MILLIGRAM, QD
     Route: 042
     Dates: start: 20180611
  16. PERTUZUMAB [Suspect]
     Active Substance: PERTUZUMAB
     Indication: HER2 positive breast cancer
     Dosage: RECENT DOSE PRIOR EVENT 12/DEC/2016
     Route: 042
     Dates: start: 20161018
  17. PERTUZUMAB [Suspect]
     Active Substance: PERTUZUMAB
     Dosage: MOST RECENT DOSE PRIOR TO THE EVENT:12/DEC/2016
     Route: 042
     Dates: start: 20161117, end: 20161117
  18. CAPECITABINE [Suspect]
     Active Substance: CAPECITABINE
     Indication: HER2 positive breast cancer
     Dosage: MOST RECENT DOSE PRIOR TO THE EVENT ON 22/OCT/2018
     Route: 042
     Dates: start: 20180618, end: 20180709
  19. CAPECITABINE [Suspect]
     Active Substance: CAPECITABINE
     Dosage: 1500 MILLIGRAM, BID
     Route: 042
     Dates: start: 20180723, end: 20181012
  20. CAPECITABINE [Suspect]
     Active Substance: CAPECITABINE
     Dosage: MOST RECENT DOSE PRIOR TO THE EVENT ON 22/OCT/2018
     Route: 042
     Dates: start: 20181022, end: 20190102
  21. TRASTUZUMAB [Suspect]
     Active Substance: TRASTUZUMAB
     Indication: HER2 positive breast cancer
     Dosage: 570 MILLIGRAM, Q3W
     Route: 048
     Dates: start: 20161117, end: 20170705
  22. FENTANYL [Concomitant]
     Active Substance: FENTANYL
     Dosage: UNK
     Route: 065
     Dates: start: 20160615
  23. FENTANYL [Concomitant]
     Active Substance: FENTANYL
     Dosage: UNK
     Route: 065
     Dates: start: 20161015
  24. ACETAMINOPHEN\CODEINE PHOSPHATE [Concomitant]
     Active Substance: ACETAMINOPHEN\CODEINE PHOSPHATE
     Dosage: UNK
     Route: 065
  25. TROFOCARD [Concomitant]
     Indication: Peripheral sensory neuropathy
     Dosage: UNK
     Route: 065
     Dates: start: 20180115
  26. CALCIUM CARBONATE\CHOLECALCIFEROL [Concomitant]
     Active Substance: CALCIUM CARBONATE\CHOLECALCIFEROL
     Dosage: UNK
     Route: 065
     Dates: start: 20171218, end: 20190605
  27. ZOMETA [Concomitant]
     Active Substance: ZOLEDRONIC ACID
     Dosage: UNK
     Route: 065
     Dates: start: 20161018, end: 20190605
  28. LEVOTHYROXINE [Concomitant]
     Active Substance: LEVOTHYROXINE
     Dosage: UNK
     Route: 065
     Dates: start: 20090615
  29. LEVOTHYROXINE [Concomitant]
     Active Substance: LEVOTHYROXINE
     Dosage: UNK
     Route: 065
     Dates: start: 20090615
  30. STABILANOL [Concomitant]
     Indication: Onychomycosis
     Dosage: UNK
     Route: 065
     Dates: start: 20171218, end: 20180106
  31. STABILANOL [Concomitant]
     Dosage: UNK
     Route: 065
     Dates: start: 20180205, end: 20180224
  32. STABILANOL [Concomitant]
     Dosage: UNK
     Route: 065
     Dates: start: 20180225
  33. CIPROFLOXACIN [Concomitant]
     Active Substance: CIPROFLOXACIN
     Indication: Pyrexia
     Dosage: UNK
     Route: 065
     Dates: start: 20190503, end: 20190510
  34. CIPROFLOXACIN [Concomitant]
     Active Substance: CIPROFLOXACIN
     Dosage: UNK
     Route: 065
     Dates: start: 20190705, end: 20190709
  35. VANCOMYCIN HYDROCHLORIDE [Concomitant]
     Active Substance: VANCOMYCIN HYDROCHLORIDE
     Dosage: UNK
     Route: 065
     Dates: start: 20190706, end: 20190709
  36. LOSEC [Concomitant]
     Active Substance: OMEPRAZOLE
     Dosage: UNK
     Route: 065
     Dates: start: 20190703, end: 20190709
  37. BILARGEN [Concomitant]
     Indication: Rash
     Dosage: UNK
     Route: 065
     Dates: start: 20180601, end: 20180625

REACTIONS (6)
  - Device related infection [Recovered/Resolved]
  - Onychomycosis [Recovered/Resolved]
  - Stomatitis [Recovered/Resolved]
  - Constipation [Recovered/Resolved]
  - Platelet count decreased [Recovered/Resolved]
  - Peripheral sensory neuropathy [Recovered/Resolved]

NARRATIVE: CASE EVENT DATE: 20170404
